FAERS Safety Report 6253037-4 (Version None)
Quarter: 2009Q3

REPORT INFORMATION
  Report Type: 
  Country: None (occurrence: None)
  Receive Date: 20090701
  Receipt Date: 20090618
  Transmission Date: 20100115
  Serious: Yes (Other)
  Sender: FDA-Public Use
  Company Number: US-PFIZER INC-2009230065

PATIENT
  Sex: Female
  Weight: 86 kg

DRUGS (6)
  1. PROVERA [Suspect]
     Indication: HORMONE REPLACEMENT THERAPY
     Dosage: UNK
     Route: 048
     Dates: start: 19990304, end: 19990404
  2. PREMARIN [Suspect]
     Indication: HORMONE REPLACEMENT THERAPY
     Dosage: 0.625 MG, UNK
     Dates: start: 19981119, end: 19990304
  3. PREMPRO [Suspect]
     Indication: HORMONE REPLACEMENT THERAPY
     Dosage: 0.625/2.5MG
     Dates: start: 19971210, end: 19990303
  4. PREMPRO [Suspect]
     Dosage: 0.625MG
     Dates: start: 19991116, end: 20000101
  5. PREMPHASE 14/14 [Suspect]
     Indication: HORMONE REPLACEMENT THERAPY
     Dosage: 0.625/2.5MG
     Dates: start: 19990802, end: 19991115
  6. ACETYLSALICYLIC ACID [Concomitant]
     Indication: PAIN
     Dosage: UNK

REACTIONS (1)
  - BREAST CANCER FEMALE [None]
